FAERS Safety Report 4753656-8 (Version None)
Quarter: 2005Q3

REPORT INFORMATION
  Report Type: 
  Country: None (occurrence: None)
  Receive Date: 20050824
  Receipt Date: 20050812
  Transmission Date: 20060218
  Serious: Yes (Life-Threatening)
  Sender: FDA-Public Use
  Company Number: MK200507-0301-1

PATIENT
  Age: 82 Year
  Sex: Female

DRUGS (2)
  1. OPTIRAY 320 [Suspect]
     Indication: COMPUTERISED TOMOGRAM
     Dosage: 100 ML, ONCE, IV
     Route: 042
     Dates: start: 20050726, end: 20050726
  2. AMLODIPINE BESILATE AND FLUVOXAMINE MALEATE [Concomitant]

REACTIONS (4)
  - COLD SWEAT [None]
  - CYANOSIS [None]
  - FOAMING AT MOUTH [None]
  - OXYGEN SATURATION DECREASED [None]
